FAERS Safety Report 23755220 (Version 1)
Quarter: 2024Q2

REPORT INFORMATION
  Report Type: Spontaneous
  Country: US (occurrence: US)
  Receive Date: 20240418
  Receipt Date: 20240418
  Transmission Date: 20240716
  Serious: No
  Sender: FDA-Public Use
  Company Number: US-AstraZeneca-CH-00606435A

PATIENT
  Sex: Male

DRUGS (1)
  1. STRENSIQ [Suspect]
     Active Substance: ASFOTASE ALFA
     Indication: Hypophosphatasia
     Dosage: UNK UNK, TIW
     Route: 058
     Dates: start: 20220216

REACTIONS (5)
  - Muscle discomfort [Recovering/Resolving]
  - Illness [Unknown]
  - Injection site irritation [Recovered/Resolved]
  - Musculoskeletal discomfort [Recovering/Resolving]
  - Intervertebral disc protrusion [Not Recovered/Not Resolved]
